FAERS Safety Report 9560083 (Version 2)
Quarter: 2013Q4

REPORT INFORMATION
  Report Type: Spontaneous
  Country: US (occurrence: US)
  Receive Date: 20130927
  Receipt Date: 20131118
  Transmission Date: 20140711
  Serious: No
  Sender: FDA-Public Use
  Company Number: US-PFIZER INC-2013275712

PATIENT
  Age: 49 Year
  Sex: Female
  Weight: 116 kg

DRUGS (12)
  1. LYRICA [Suspect]
     Indication: FIBROMYALGIA
     Dosage: 75 MG, 2X/DAY
     Route: 048
  2. LYRICA [Suspect]
     Dosage: 150 MG, 2X/DAY
     Route: 048
  3. ZONISAMIDE [Concomitant]
     Dosage: 100 MG, 3X/DAY (AT BEDTIME)
     Route: 048
  4. COLECALCIFEROL [Concomitant]
     Dosage: 1000 IU, 2X/DAY
     Route: 048
  5. FLUOXETINE [Concomitant]
     Dosage: 40 MG, 1X/DAY
     Route: 048
  6. CALCIUM 600 + D [Concomitant]
     Dosage: 600+D 600 MG-200 INTERNATIONAL UNITS, 1X/DAY
     Route: 048
  7. VITAMIN B12 [Concomitant]
     Dosage: 1000 UG, 1X/DAY
     Route: 048
  8. DIFLORASONE [Concomitant]
     Indication: RASH
     Dosage: 1 APP APPLY TOPICALLY, 2X/DAY
     Route: 061
  9. ALPRAZOLAM [Concomitant]
     Indication: ANXIETY
     Dosage: 0.5 MG 4 TIMES A DAY, AS NEEDED
     Route: 048
  10. VITAMIN D3 [Concomitant]
     Dosage: 2000 IU, 1X/DAY
     Route: 048
  11. CLONAZEPAM [Concomitant]
     Dosage: 1 MG, 3X/DAY
  12. CELEBREX [Concomitant]
     Indication: ABDOMINAL DISCOMFORT
     Dosage: 200 MG, 1X/DAY
     Route: 048
     Dates: start: 20110520, end: 20130503

REACTIONS (4)
  - Pain [Unknown]
  - Myalgia [Unknown]
  - Arthralgia [Unknown]
  - Bone pain [Unknown]
